FAERS Safety Report 4902803-3 (Version None)
Quarter: 2006Q1

REPORT INFORMATION
  Report Type: 
  Country: None (occurrence: None)
  Receive Date: 20060207
  Receipt Date: 20060131
  Transmission Date: 20060701
  Serious: Yes (Other)
  Sender: FDA-Public Use
  Company Number: IT-GLAXOSMITHKLINE-B0409240A

PATIENT
  Age: 64 Year
  Sex: Female

DRUGS (6)
  1. AVANDIA [Suspect]
     Indication: DIABETES MELLITUS
     Dosage: 8MG PER DAY
     Route: 048
     Dates: start: 20021201, end: 20060125
  2. ASPIRIN [Concomitant]
     Indication: HYPERTENSION
     Route: 048
  3. DILTIAZEM HCL [Concomitant]
     Indication: HYPERTENSION
     Route: 048
  4. METFORMINA [Concomitant]
     Indication: DIABETES MELLITUS
     Route: 048
  5. RAMIPRIL [Concomitant]
     Route: 065
  6. SINVACOR [Concomitant]
     Route: 048

REACTIONS (2)
  - RETINAL ANEURYSM [None]
  - VISUAL ACUITY REDUCED [None]
